FAERS Safety Report 6493241-3 (Version None)
Quarter: 2009Q4

REPORT INFORMATION
  Report Type: 
  Country: None (occurrence: None)
  Receive Date: 20091211
  Receipt Date: 20091211
  Transmission Date: 20100525
  Serious: Yes (Death)
  Sender: FDA-Public Use
  Company Number: None

PATIENT
  Age: 27 Year
  Sex: Female
  Weight: 58.9676 kg

DRUGS (3)
  1. ZOLOFT [Suspect]
     Indication: ANXIETY
     Dates: start: 20091025, end: 20091127
  2. ZOLOFT [Suspect]
     Indication: DEPRESSION
     Dates: start: 20091025, end: 20091127
  3. ZOLOFT [Suspect]
     Indication: SUICIDAL IDEATION
     Dates: start: 20091025, end: 20091127

REACTIONS (2)
  - ANXIETY [None]
  - ASPHYXIA [None]
